FAERS Safety Report 8831071 (Version 1)
Quarter: 2012Q4

REPORT INFORMATION
  Report Type: 
  Country: US (occurrence: US)
  Receive Date: 20121009
  Receipt Date: 20121009
  Transmission Date: 20130627
  Serious: No
  Sender: FDA-Public Use
  Company Number: US-PFIZER INC-2012245472

PATIENT
  Sex: Male

DRUGS (3)
  1. VFEND [Suspect]
     Indication: ASPERGILLOSIS
  2. CIPRO [Interacting]
     Indication: EPIDIDYMITIS
  3. PREDNISONE [Suspect]
     Dosage: 15 mg

REACTIONS (4)
  - Drug interaction [Unknown]
  - Erythema [Recovering/Resolving]
  - Syncope [Recovering/Resolving]
  - Fatigue [Recovering/Resolving]
